FAERS Safety Report 8887528 (Version 1)
Quarter: 2012Q4

REPORT INFORMATION
  Report Type: Spontaneous
  Country: FR (occurrence: None)
  Receive Date: 20121031
  Receipt Date: 20121031
  Transmission Date: 20130627
  Serious: Yes (Other)
  Sender: FDA-Public Use
  Company Number: FR-GDP-12415292

PATIENT
  Age: 57 Year
  Sex: Male

DRUGS (2)
  1. METVIXIA [Suspect]
     Indication: ACTINIC KERATOSIS
     Route: 061
     Dates: start: 20120316
  2. METVIXIA [Suspect]
     Indication: ACTINIC KERATOSIS
     Dosage: (2 g, 2 g) (2 g, Topical)
     Route: 061
     Dates: start: 20120427

REACTIONS (2)
  - Squamous cell carcinoma [None]
  - Squamous cell carcinoma [None]
